FAERS Safety Report 10591076 (Version 3)
Quarter: 2014Q4

REPORT INFORMATION
  Report Type: Spontaneous
  Country: US (occurrence: US)
  Receive Date: 20141118
  Receipt Date: 20141203
  Transmission Date: 20150529
  Serious: Yes (Death)
  Sender: FDA-Public Use
  Company Number: US-BAYER-2014-166962

PATIENT
  Sex: Male

DRUGS (1)
  1. ALKA-SELTZER PLUS COLD FORMULA [Suspect]
     Active Substance: ASPIRIN\CHLORPHENIRAMINE MALEATE\PHENYLEPHRINE BITARTRATE
     Indication: ASTHMA
     Dosage: 2 DF, PRN
     Route: 048
     Dates: end: 201012

REACTIONS (3)
  - Drug ineffective for unapproved indication [Unknown]
  - Diabetic complication [Fatal]
  - Medication error [Unknown]

NARRATIVE: CASE EVENT DATE: 2001
